FAERS Safety Report 17513747 (Version 6)
Quarter: 2020Q2

REPORT INFORMATION
  Report Type: Report from Study
  Country: US (occurrence: US)
  Receive Date: 20200306
  Receipt Date: 20200625
  Transmission Date: 20200713
  Serious: No
  Sender: FDA-Public Use
  Company Number: NVSC2020US064211

PATIENT
  Age: 84 Year
  Sex: Male

DRUGS (2)
  1. BEOVU [Suspect]
     Active Substance: BROLUCIZUMAB-DBLL
     Indication: AGE-RELATED MACULAR DEGENERATION
     Dosage: 6 MG, ONCE/SINGLE, IN RIGHT EYE
     Route: 047
     Dates: start: 20191216
  2. BEOVU [Suspect]
     Active Substance: BROLUCIZUMAB-DBLL
     Dosage: UNK (6 WEEKS)
     Route: 065
     Dates: start: 20200227

REACTIONS (2)
  - Eye irritation [Recovered/Resolved]
  - Reading disorder [Unknown]

NARRATIVE: CASE EVENT DATE: 20200227
